FAERS Safety Report 7921812 (Version 9)
Quarter: 2015Q2

REPORT INFORMATION
  Report Type: Spontaneous
  Country: US (occurrence: US)
  Receive Date: 20110429
  Receipt Date: 20150603
  Transmission Date: 20150821
  Serious: Yes (Other)
  Sender: FDA-Public Use
  Company Number: US-ASTRAZENECA-2010SE54153

PATIENT
  Age: 786 Month
  Sex: Female

DRUGS (2)
  1. PRILOSEC OTC [Suspect]
     Active Substance: OMEPRAZOLE MAGNESIUM
     Route: 048
  2. NEXIUM [Suspect]
     Active Substance: ESOMEPRAZOLE MAGNESIUM
     Route: 048

REACTIONS (11)
  - Gastrooesophageal reflux disease [Unknown]
  - Drug dose omission [Unknown]
  - Pharyngeal disorder [Unknown]
  - Ear disorder [Unknown]
  - Gastric ulcer [Unknown]
  - Drug effect incomplete [Recovered/Resolved]
  - Arthritis [Unknown]
  - Intentional product misuse [Unknown]
  - Neoplasm malignant [Unknown]
  - Intervertebral disc degeneration [Unknown]
  - Malaise [Not Recovered/Not Resolved]
